FAERS Safety Report 10258540 (Version 1)
Quarter: 2014Q2

REPORT INFORMATION
  Report Type: Report from Study
  Country: BR (occurrence: BR)
  Receive Date: 20140625
  Receipt Date: 20140625
  Transmission Date: 20141212
  Serious: Yes (Hospitalization, Other)
  Sender: FDA-Public Use
  Company Number: PHHY2014BR077903

PATIENT
  Age: 14 Year
  Sex: Female
  Weight: 74 kg

DRUGS (8)
  1. EXJADE [Suspect]
     Indication: SICKLE CELL ANAEMIA
     Dosage: 8 DF, DAILY
  2. EXJADE [Suspect]
     Dosage: 9 DF, DAILY
  3. DESFERAL [Suspect]
     Indication: SERUM FERRITIN INCREASED
     Dosage: 2 DF, Q6H
     Route: 055
     Dates: start: 2004
  4. DESFERAL [Suspect]
     Dosage: UNK UKN, UNK
     Route: 048
  5. DESFERAL [Suspect]
     Dosage: UNK UKN, QW
     Route: 042
  6. FOLIC ACID [Concomitant]
     Dosage: 1 DF, DAILY
     Dates: start: 1998
  7. COMPLEX B [Concomitant]
     Dosage: 1 DF, DAILY
     Dates: start: 1998
  8. AAS [Concomitant]
     Indication: ANTICOAGULANT THERAPY
     Dosage: 2 DF, DAILY
     Dates: start: 2004

REACTIONS (5)
  - Bronchospasm [Not Recovered/Not Resolved]
  - Fatigue [Not Recovered/Not Resolved]
  - Cerebrovascular accident [Unknown]
  - Arrhythmia [Not Recovered/Not Resolved]
  - Lung disorder [Unknown]
